FAERS Safety Report 16552792 (Version 1)
Quarter: 2019Q3

REPORT INFORMATION
  Report Type: Spontaneous
  Country: US (occurrence: US)
  Receive Date: 20190529
  Receipt Date: 20190529
  Transmission Date: 20191004
  Serious: Yes (Hospitalization, Other)
  Sender: FDA-Public Use
  Company Number: None

PATIENT
  Age: 56 Year
  Sex: Female
  Weight: 76.66 kg

DRUGS (4)
  1. ACUPUNCTURE [Concomitant]
     Active Substance: DEVICE
  2. CYTOXAN [Suspect]
     Active Substance: CYCLOPHOSPHAMIDE
  3. ADRIAMYCIN [Suspect]
     Active Substance: DOXORUBICIN HYDROCHLORIDE
     Indication: BREAST CANCER
  4. TAXOL [Suspect]
     Active Substance: PACLITAXEL

REACTIONS (25)
  - Joint swelling [None]
  - Peripheral swelling [None]
  - Erythema [None]
  - Pain [None]
  - Depression [None]
  - Skin discolouration [None]
  - Tongue discolouration [None]
  - Alopecia [None]
  - Skin exfoliation [None]
  - Refusal of treatment by patient [None]
  - Gait disturbance [None]
  - Dermatitis [None]
  - Nerve injury [None]
  - Discomfort [None]
  - Neuropathy peripheral [None]
  - Emotional disorder [None]
  - Stress [None]
  - Madarosis [None]
  - Abscess [None]
  - Neuralgia [None]
  - Mental disorder [None]
  - Fear [None]
  - Nail discolouration [None]
  - Blister [None]
  - Quality of life decreased [None]

NARRATIVE: CASE EVENT DATE: 20180403
